FAERS Safety Report 6172817-7 (Version None)
Quarter: 2009Q2

REPORT INFORMATION
  Report Type: 
  Country: None (occurrence: None)
  Receive Date: 20090428
  Receipt Date: 20090421
  Transmission Date: 20091009
  Serious: Yes (Life-Threatening)
  Sender: FDA-Public Use
  Company Number: 09GB000863

PATIENT
  Age: 26 Year
  Sex: Female
  Weight: 57.2 kg

DRUGS (9)
  1. IBUPROFEN [Suspect]
     Indication: DRUG USE FOR UNKNOWN INDICATION
     Dosage: 9.6 G, SINGLE, ORAL
     Route: 048
     Dates: start: 20090315, end: 20090315
  2. PARACETAMOL 16028/0012 500 MG (PARACETAMOL) TABLET [Suspect]
     Indication: DRUG USE FOR UNKNOWN INDICATION
     Dosage: 12 G, SINGLE, ORAL
     Route: 048
     Dates: start: 20090315, end: 20090315
  3. ALCOHOL (ETHANOL) [Suspect]
     Indication: DRUG USE FOR UNKNOWN INDICATION
     Dosage: ORAL
     Route: 048
     Dates: start: 20090315, end: 20090315
  4. ANADIN EXTRA (ACETYLSALICYLIC ACID, CAFFEINE, PARACETAMOL) [Suspect]
     Indication: DRUG USE FOR UNKNOWN INDICATION
     Dosage: 8 DF, SINGLE, ORAL
     Route: 048
     Dates: start: 20090315, end: 20090315
  5. VARENICLINE TARTRATE (VARENICLINE TARTRATE) [Suspect]
     Indication: SMOKING CESSATION THERAPY
     Dosage: ORAL
     Route: 048
     Dates: start: 20090309, end: 20090330
  6. BECLOMETHASONE DIPROPIONATE [Concomitant]
  7. DIANETTE (CYPROTERONE ACETATE, ETHINYLESTRADIOL) [Concomitant]
  8. SALBUTAMOL (SALBUTAMOL SULFATE) [Concomitant]
  9. YASMIN [Concomitant]

REACTIONS (3)
  - ABDOMINAL PAIN [None]
  - MULTIPLE DRUG OVERDOSE INTENTIONAL [None]
  - NAUSEA [None]
